FAERS Safety Report 14273597 (Version 3)
Quarter: 2018Q1

REPORT INFORMATION
  Report Type: Spontaneous
  Country: US (occurrence: US)
  Receive Date: 20171212
  Receipt Date: 20180323
  Transmission Date: 20180508
  Serious: Yes (Hospitalization)
  Sender: FDA-Public Use
  Company Number: US-009507513-1712USA005108

PATIENT
  Sex: Female
  Weight: 81.63 kg

DRUGS (5)
  1. OLMESARTAN MEDOXOMIL (+) AMLODIPINE BESYLATE [Suspect]
     Active Substance: AMLODIPINE BESYLATE\OLMESARTAN MEDOXOMIL
     Indication: HYPERTENSION
     Dosage: 40/10 MG, QD
     Route: 048
     Dates: start: 2014, end: 2017
  2. AMLODIPINE [Suspect]
     Active Substance: AMLODIPINE BESYLATE
     Indication: HYPERTENSION
     Dosage: UNK
     Route: 065
     Dates: end: 2017
  3. LOSARTAN POTASSIUM. [Suspect]
     Active Substance: LOSARTAN POTASSIUM
     Indication: HYPERTENSION
     Dosage: UNK
     Route: 065
     Dates: start: 2017, end: 2017
  4. [COMPOSITION UNSPECIFIED] [Suspect]
     Active Substance: UNSPECIFIED INGREDIENT
     Indication: HYPERTENSION
     Dosage: UNK
     Route: 065
  5. OLMESARTAN MEDOXOMIL (+) AMLODIPINE BESYLATE [Suspect]
     Active Substance: AMLODIPINE BESYLATE\OLMESARTAN MEDOXOMIL
     Dosage: 5/40 MG, QD
     Route: 048
     Dates: start: 201709

REACTIONS (12)
  - Blister [Unknown]
  - Drug hypersensitivity [Recovered/Resolved]
  - Diabetes mellitus [Not Recovered/Not Resolved]
  - Malaise [Unknown]
  - Swelling [Recovered/Resolved]
  - Rash [Unknown]
  - Rectal haemorrhage [Recovered/Resolved]
  - Urticaria [Recovered/Resolved]
  - Polypectomy [Recovered/Resolved]
  - Unevaluable event [Recovered/Resolved]
  - Asthenia [Unknown]
  - Pyrexia [Unknown]

NARRATIVE: CASE EVENT DATE: 2015
